FAERS Safety Report 7792895-9 (Version None)
Quarter: 2011Q4

REPORT INFORMATION
  Report Type: 
  Country: None (occurrence: None)
  Receive Date: 20111003
  Receipt Date: 20110921
  Transmission Date: 20120403
  Serious: Yes (Hospitalization, Other)
  Sender: FDA-Public Use
  Company Number: PHFR2011GB05488

PATIENT
  Sex: Male

DRUGS (4)
  1. HYOSCINE [Concomitant]
     Route: 065
  2. CLOZAPINE [Suspect]
     Indication: SCHIZOPHRENIA
     Dosage: 400 MG/DAY
     Route: 048
     Dates: start: 20071108
  3. AMISULPRIDE [Suspect]
     Route: 065
  4. CITALOPRAM HYDROBROMIDE [Concomitant]
     Route: 065

REACTIONS (5)
  - RENAL FAILURE CHRONIC [None]
  - RHABDOMYOLYSIS [None]
  - SUBSTANCE ABUSE [None]
  - RENAL FAILURE ACUTE [None]
  - CIRCULATORY COLLAPSE [None]
